FAERS Safety Report 21161377 (Version 1)
Quarter: 2022Q3

REPORT INFORMATION
  Report Type: Spontaneous
  Country: US (occurrence: US)
  Receive Date: 20220802
  Receipt Date: 20220802
  Transmission Date: 20221027
  Serious: Yes (Hospitalization)
  Sender: FDA-Public Use
  Company Number: US-PFIZER INC-202201021869

PATIENT
  Age: 89 Year
  Sex: Female

DRUGS (3)
  1. PAXLOVID [Suspect]
     Active Substance: NIRMATRELVIR\RITONAVIR
     Indication: COVID-19 treatment
     Dosage: UNK
     Route: 048
     Dates: start: 20220725, end: 20220728
  2. LISINOPRIL AND HYDROCHLOROTHIAZIDE [Concomitant]
     Active Substance: HYDROCHLOROTHIAZIDE\LISINOPRIL
     Indication: Blood pressure management
     Dosage: UNK
     Route: 048
     Dates: start: 20190707, end: 20220728
  3. METOPROLOL [Concomitant]
     Active Substance: METOPROLOL
     Indication: Blood pressure management
     Dosage: UNK
     Dates: start: 20190707, end: 20220728

REACTIONS (6)
  - Syncope [Recovered/Resolved]
  - Feeling jittery [Recovered/Resolved]
  - Anxiety [Recovered/Resolved]
  - Fear [Recovered/Resolved]
  - Dizziness [Recovered/Resolved]
  - Taste disorder [Recovered/Resolved]

NARRATIVE: CASE EVENT DATE: 20220725
